FAERS Safety Report 6934241-6 (Version None)
Quarter: 2010Q3

REPORT INFORMATION
  Report Type: 
  Country: None (occurrence: None)
  Receive Date: 20100820
  Receipt Date: 20100812
  Transmission Date: 20110219
  Serious: Yes (Other)
  Sender: FDA-Public Use
  Company Number: US-PFIZER INC-2010084720

PATIENT
  Sex: Male
  Weight: 74.376 kg

DRUGS (4)
  1. LIPITOR [Suspect]
     Indication: HYPERLIPIDAEMIA
     Dosage: 10 MG, 1X/DAY
     Dates: start: 20050201, end: 20050601
  2. LIPITOR [Suspect]
     Dates: start: 19990101
  3. ZETIA [Concomitant]
  4. NIASPAN [Concomitant]

REACTIONS (6)
  - BLOOD CHOLESTEROL ABNORMAL [None]
  - BLOOD TRIGLYCERIDES INCREASED [None]
  - CEREBROVASCULAR ACCIDENT [None]
  - LOW DENSITY LIPOPROTEIN INCREASED [None]
  - MUSCULAR WEAKNESS [None]
  - MYALGIA [None]
